FAERS Safety Report 22010886 (Version 2)
Quarter: 2023Q1

REPORT INFORMATION
  Report Type: Spontaneous
  Country: US (occurrence: US)
  Receive Date: 20230220
  Receipt Date: 20230317
  Transmission Date: 20230418
  Serious: No
  Sender: FDA-Public Use
  Company Number: US-SA-SAC20230216000627

PATIENT
  Age: 47 Year
  Sex: Female
  Weight: 64.853 kg

DRUGS (2)
  1. DUPIXENT [Suspect]
     Active Substance: DUPILUMAB
     Indication: Eosinophilic oesophagitis
     Dosage: 300 MG, QW
     Route: 058
     Dates: start: 20230202
  2. PROTONIX [Concomitant]
     Active Substance: PANTOPRAZOLE SODIUM
     Indication: Eosinophilic oesophagitis
     Dosage: 40MG
     Route: 048
     Dates: start: 20190404

REACTIONS (1)
  - Ecchymosis [Recovered/Resolved]

NARRATIVE: CASE EVENT DATE: 20230204
